FAERS Safety Report 7727146-4 (Version None)
Quarter: 2011Q3

REPORT INFORMATION
  Report Type: 
  Country: None (occurrence: None)
  Receive Date: 20110902
  Receipt Date: 20110803
  Transmission Date: 20111222
  Serious: Yes (Hospitalization)
  Sender: FDA-Public Use
  Company Number: IT-BAYER-2011-068624

PATIENT
  Age: 40 Year
  Sex: Male

DRUGS (5)
  1. INSULIN [Concomitant]
     Indication: TYPE 2 DIABETES MELLITUS
  2. RAMIPRIL [Concomitant]
     Indication: HYPERTENSION
  3. EZETIMIBE [Concomitant]
  4. ALLOPURINOL [Concomitant]
     Indication: HYPERURICAEMIA
  5. ACETYLSALICYLIC ACID SRT [Suspect]
     Indication: ISCHAEMIC HEART DISEASE PROPHYLAXIS
     Dosage: DAILY DOSE 100 MG
     Route: 048
     Dates: start: 20100101, end: 20110416

REACTIONS (1)
  - DUODENAL ULCER HAEMORRHAGE [None]
